FAERS Safety Report 9604497 (Version 2)
Quarter: 2013Q4

REPORT INFORMATION
  Report Type: Not Available
  Country: IT (occurrence: IT)
  Receive Date: 20131008
  Receipt Date: 20131121
  Transmission Date: 20140711
  Serious: Yes (Hospitalization, Other)
  Sender: FDA-Public Use
  Company Number: IT-ASTELLAS-2013US010342

PATIENT
  Age: 71 Year
  Sex: Female

DRUGS (2)
  1. TARCEVA [Suspect]
     Indication: LUNG NEOPLASM MALIGNANT
     Dosage: 150 MG, 1 IN 1 D
     Route: 048
     Dates: start: 20130523, end: 20130627
  2. MEDROL                             /00049601/ [Concomitant]
     Indication: CANCER PAIN
     Dosage: 8 MG, UNKNOWN/D
     Route: 048
     Dates: start: 20130108, end: 20130627

REACTIONS (2)
  - Haemorrhagic anaemia [Recovered/Resolved]
  - Gastric ulcer [Recovered/Resolved]
